FAERS Safety Report 23547715 (Version 1)
Quarter: 2024Q1

REPORT INFORMATION
  Report Type: Spontaneous
  Country: RO (occurrence: RO)
  Receive Date: 20240221
  Receipt Date: 20240221
  Transmission Date: 20240410
  Serious: Yes (Life-Threatening, Other)
  Sender: FDA-Public Use
  Company Number: RO-ASTELLAS-2023US000111

PATIENT
  Age: 60 Year
  Sex: Male

DRUGS (11)
  1. AZACITIDINE [Suspect]
     Active Substance: AZACITIDINE
     Indication: Acute myeloid leukaemia recurrent
     Dosage: 75 MG/M2, ONCE DAILY (D1-7) 1ST CYCLE OF TRIPLE THERAPY
     Route: 065
     Dates: start: 202210, end: 202211
  2. AZACITIDINE [Suspect]
     Active Substance: AZACITIDINE
     Dosage: 75 MG/M2, ONCE DAILY (D1-7) 2ND CYCLE OF TRIPLE THERAPY
     Route: 065
     Dates: start: 202211
  3. VENETOCLAX [Suspect]
     Active Substance: VENETOCLAX
     Indication: Acute myeloid leukaemia recurrent
     Dosage: 100 MG, ONCE DAILY (1ST CYCLE OF TRIPLE THERAPY)
     Route: 065
     Dates: start: 202210, end: 202211
  4. VENETOCLAX [Suspect]
     Active Substance: VENETOCLAX
     Dosage: 100 MG, ONCE DAILY (FOR 7 DAYS) (2ND CYCLE OF TRIPLE THERAPY)
     Route: 065
     Dates: start: 202211
  5. VORICONAZOLE [Suspect]
     Active Substance: VORICONAZOLE
     Indication: Acute myeloid leukaemia recurrent
     Dosage: UNK, UNKNOWN FREQ. (14 DAYS) CYCLE 1
     Route: 065
     Dates: start: 202210, end: 202211
  6. VORICONAZOLE [Suspect]
     Active Substance: VORICONAZOLE
     Dosage: UNK, UNKNOWN FREQ. (CYCLE 2)
     Route: 065
     Dates: start: 202211
  7. GILTERITINIB [Suspect]
     Active Substance: GILTERITINIB
     Indication: Acute myeloid leukaemia recurrent
     Dosage: 120 MILLIGRAM, ONCE A DAY
     Route: 048
     Dates: start: 202208, end: 202209
  8. GILTERITINIB [Suspect]
     Active Substance: GILTERITINIB
     Dosage: 200 MILLIGRAM, ONCE A DAY
     Route: 048
     Dates: start: 202209, end: 202210
  9. GILTERITINIB [Suspect]
     Active Substance: GILTERITINIB
     Dosage: 120 MG, ONCE DAILY (21 D) 1ST CYCLE OF TRIPLE THERAPY
     Route: 048
     Dates: start: 202210
  10. GILTERITINIB [Suspect]
     Active Substance: GILTERITINIB
     Dosage: 120 MG, ONCE DAILY (21 D, 2ND CYCLE OF TRIPLE THERAPY)
     Route: 048
     Dates: start: 202211
  11. GILTERITINIB [Suspect]
     Active Substance: GILTERITINIB
     Dosage: 120 MG, ONCE DAILY (MONOTHERAPY)
     Route: 048
     Dates: start: 202212

REACTIONS (8)
  - Neutropenia [Unknown]
  - Hepatic cytolysis [Unknown]
  - Thrombocytopenia [Unknown]
  - Aspiration bone marrow abnormal [Unknown]
  - Anaemia [Unknown]
  - SARS-CoV-2 test positive [Not Recovered/Not Resolved]
  - Off label use [Unknown]
  - Product use issue [Unknown]

NARRATIVE: CASE EVENT DATE: 20221001
